FAERS Safety Report 19205153 (Version 1)
Quarter: 2021Q2

REPORT INFORMATION
  Report Type: Spontaneous
  Country: US (occurrence: US)
  Receive Date: 20210501
  Receipt Date: 20210501
  Transmission Date: 20210717
  Serious: Yes (Other)
  Sender: FDA-Public Use
  Company Number: None

PATIENT
  Age: 75 Year
  Sex: Female
  Weight: 56.25 kg

DRUGS (5)
  1. MULTIVITAMINS [Concomitant]
     Active Substance: VITAMINS
  2. TRAZODONE [Concomitant]
     Active Substance: TRAZODONE HYDROCHLORIDE
  3. LUMIGAN [Suspect]
     Active Substance: BIMATOPROST
     Indication: INTRAOCULAR PRESSURE INCREASED
     Dosage: ?          QUANTITY:1 DROP(S);?
     Route: 047
     Dates: start: 20210308, end: 20210402
  4. CALCIUM [Concomitant]
     Active Substance: CALCIUM
  5. VITAMIN D [Concomitant]
     Active Substance: VITAMIN D NOS

REACTIONS (3)
  - Arthralgia [None]
  - Pain in extremity [None]
  - Hypertension [None]

NARRATIVE: CASE EVENT DATE: 20210402
